FAERS Safety Report 20985871 (Version 1)
Quarter: 2022Q2

REPORT INFORMATION
  Report Type: Spontaneous
  Country: US (occurrence: US)
  Receive Date: 20220621
  Receipt Date: 20220621
  Transmission Date: 20220721
  Serious: No
  Sender: FDA-Public Use
  Company Number: US-ORGANON-O2206USA001644

PATIENT
  Age: 36 Year
  Sex: Female

DRUGS (11)
  1. FOLLISTIM AQ [Suspect]
     Active Substance: FOLLITROPIN
     Indication: Infertility female
     Dosage: 900 UNT/1.08ML, 300 UNITS UNDER THE SKIN EVERY DAY
     Route: 058
     Dates: start: 20220324
  2. FOLLISTIM AQ [Suspect]
     Active Substance: FOLLITROPIN
  3. PROGESTERONE [Suspect]
     Active Substance: PROGESTERONE
     Dosage: UNK
  4. GANIRELIX ACETATE [Concomitant]
     Active Substance: GANIRELIX ACETATE
  5. PREGNYL [Concomitant]
     Active Substance: CHORIOGONADOTROPIN ALFA
  6. CLOMIPHENE CITRATE [Concomitant]
     Active Substance: CLOMIPHENE CITRATE
  7. COENZYME Q10 [Concomitant]
     Active Substance: DIETARY SUPPLEMENT\UBIDECARENONE
  8. VITAMIN D3 [Concomitant]
     Active Substance: CHOLECALCIFEROL
  9. DOXYCYCLINE HYCLATE [Concomitant]
     Active Substance: DOXYCYCLINE HYCLATE
  10. LEUPROLIDE ACETATE [Concomitant]
     Active Substance: LEUPROLIDE ACETATE
  11. MINERALS\VITAMINS [Concomitant]
     Active Substance: MINERALS\VITAMINS

REACTIONS (1)
  - Rash [Unknown]

NARRATIVE: CASE EVENT DATE: 20220501
